FAERS Safety Report 5226891-2 (Version None)
Quarter: 2007Q1

REPORT INFORMATION
  Report Type: 
  Country: None (occurrence: None)
  Receive Date: 20070130
  Receipt Date: 20070123
  Transmission Date: 20070707
  Serious: Yes (Life-Threatening, Hospitalization)
  Sender: FDA-Public Use
  Company Number: CLOF-10437

PATIENT
  Age: 34 Year
  Sex: Female

DRUGS (5)
  1. CLOFARABINE [Suspect]
     Indication: CHRONIC MYELOID LEUKAEMIA
     Dosage: 40 MG/M2 QD X 5 IV
     Route: 042
     Dates: start: 20061204, end: 20061209
  2. BUSULFAN [Suspect]
     Indication: CHRONIC MYELOID LEUKAEMIA
     Dosage: 32 MG/M2 IV
     Route: 042
  3. BUSULFAN [Suspect]
     Indication: CHRONIC MYELOID LEUKAEMIA
     Dosage: 130 MG/M2 IV
     Route: 042
  4. OPIOIDS [Concomitant]
  5. METHADONE HCL [Concomitant]

REACTIONS (3)
  - ACUTE RESPIRATORY FAILURE [None]
  - LOSS OF CONSCIOUSNESS [None]
  - MULTIPLE DRUG OVERDOSE [None]
